FAERS Safety Report 7383320-0 (Version None)
Quarter: 2011Q1

REPORT INFORMATION
  Report Type: 
  Country: None (occurrence: None)
  Receive Date: 20110330
  Receipt Date: 20110327
  Transmission Date: 20110831
  Serious: Yes (Hospitalization)
  Sender: FDA-Public Use
  Company Number: US-PFIZER INC-2011067839

PATIENT
  Sex: Male
  Weight: 65.76 kg

DRUGS (1)
  1. ROBITUSSIN [Suspect]
     Indication: INFLUENZA
     Dosage: UNK
     Dates: start: 20110201, end: 20110101

REACTIONS (2)
  - MALAISE [None]
  - ABDOMINAL PAIN UPPER [None]
